FAERS Safety Report 8103942-9 (Version None)
Quarter: 2012Q1

REPORT INFORMATION
  Report Type: 
  Country: None (occurrence: None)
  Receive Date: 20120201
  Receipt Date: 20120126
  Transmission Date: 20120608
  Serious: Yes (Other)
  Sender: FDA-Public Use
  Company Number: PHHY2012CA007465

PATIENT
  Sex: Female

DRUGS (1)
  1. ZOLEDRONOC ACID [Suspect]
     Indication: OSTEOPOROSIS
     Dosage: UNK
     Route: 042
     Dates: start: 20110317

REACTIONS (8)
  - OCULAR DISCOMFORT [None]
  - POOR PERIPHERAL CIRCULATION [None]
  - PAIN IN EXTREMITY [None]
  - AMNESIA [None]
  - CATARACT [None]
  - MALAISE [None]
  - MACULAR DEGENERATION [None]
  - DEPRESSION [None]
